FAERS Safety Report 6454557-X (Version None)
Quarter: 2009Q4

REPORT INFORMATION
  Report Type: 
  Country: None (occurrence: None)
  Receive Date: 20091118
  Receipt Date: 20091109
  Transmission Date: 20100525
  Serious: Yes (Death)
  Sender: FDA-Public Use
  Company Number: PAR_03164_2009

PATIENT
  Sex: Male
  Weight: 67.1324 kg

DRUGS (5)
  1. MEGACE ES [Suspect]
     Indication: DRUG USE FOR UNKNOWN INDICATION
     Dosage: 1 DF, QD,  625 MG/5ML, ORAL
     Route: 048
     Dates: start: 20090501, end: 20090101
  2. DILANTIN [Concomitant]
  3. NPH INSULIN [Concomitant]
  4. REGULAR INSULIN [Concomitant]
  5. ASPIRIN [Concomitant]

REACTIONS (1)
  - DEATH [None]
